FAERS Safety Report 13998130 (Version 1)
Quarter: 2017Q3

REPORT INFORMATION
  Report Type: Spontaneous
  Country: US (occurrence: US)
  Receive Date: 20170921
  Receipt Date: 20170921
  Transmission Date: 20171128
  Serious: Yes (Other)
  Sender: FDA-Public Use
  Company Number: US-ACTELION-A-NJ2017-159595

PATIENT
  Age: 10 Month
  Sex: Female

DRUGS (2)
  1. TRACLEER [Suspect]
     Active Substance: BOSENTAN
     Indication: PULMONARY ARTERIAL HYPERTENSION
     Dosage: 75 MG, BID SOLN (1 MG/KG/DOSE)
     Route: 048
     Dates: start: 201707, end: 20170815
  2. TRACLEER [Suspect]
     Active Substance: BOSENTAN
     Dosage: 8.5 MG, BID SOLN (1 MG/KG/DOSE)
     Route: 048
     Dates: start: 20170819, end: 20170821

REACTIONS (7)
  - Blood alkaline phosphatase increased [Recovering/Resolving]
  - Aspartate aminotransferase increased [Recovering/Resolving]
  - Drug intolerance [Recovering/Resolving]
  - Gastrointestinal haemorrhage [Recovering/Resolving]
  - Bilirubin conjugated increased [Recovering/Resolving]
  - Liver function test increased [Recovering/Resolving]
  - Alanine aminotransferase [Recovering/Resolving]

NARRATIVE: CASE EVENT DATE: 20170724
